FAERS Safety Report 14840173 (Version 2)
Quarter: 2018Q2

REPORT INFORMATION
  Report Type: Spontaneous
  Country: SK (occurrence: SK)
  Receive Date: 20180503
  Receipt Date: 20180518
  Transmission Date: 20180711
  Serious: Yes (Hospitalization, Congenital Anomaly)
  Sender: FDA-Public Use
  Company Number: SK-TEVA-2018-SK-886014

PATIENT
  Sex: Female
  Weight: 3.2 kg

DRUGS (1)
  1. AZITHROMYCIN ANHYDROUS. [Suspect]
     Active Substance: AZITHROMYCIN ANHYDROUS
     Indication: LARYNGITIS
     Route: 064

REACTIONS (3)
  - Congenital cystic lung [Recovering/Resolving]
  - Foetal exposure during pregnancy [Unknown]
  - Live birth [Unknown]
